FAERS Safety Report 16540865 (Version 1)
Quarter: 2019Q3

REPORT INFORMATION
  Report Type: Spontaneous
  Country: US (occurrence: US)
  Receive Date: 20190708
  Receipt Date: 20190708
  Transmission Date: 20191004
  Serious: Yes (Other)
  Sender: FDA-Public Use
  Company Number: US-SA-2019SA179203

PATIENT
  Age: 81 Year
  Sex: Female

DRUGS (1)
  1. DULCOLAX (BISACODYL) [Suspect]
     Active Substance: BISACODYL
     Indication: CONSTIPATION

REACTIONS (4)
  - Drug ineffective [Unknown]
  - Arthritis [Unknown]
  - Colon operation [Unknown]
  - Urinary tract infection [Unknown]
